FAERS Safety Report 12486018 (Version 1)
Quarter: 2016Q2

REPORT INFORMATION
  Report Type: Spontaneous
  Country: US (occurrence: US)
  Receive Date: 20160621
  Receipt Date: 20160621
  Transmission Date: 20160815
  Serious: No
  Sender: FDA-Public Use
  Company Number: US-ROCHE-1690309

PATIENT
  Sex: Female

DRUGS (3)
  1. CELLCEPT [Suspect]
     Active Substance: MYCOPHENOLATE MOFETIL\MYCOPHENOLATE MOFETIL HYDROCHLORIDE
     Indication: HEART TRANSPLANT
     Route: 065
     Dates: start: 201506
  2. RAPAMUNE [Concomitant]
     Active Substance: SIROLIMUS
     Indication: HEART TRANSPLANT
     Dosage: IN AM
     Route: 065
  3. WARFARIN [Concomitant]
     Active Substance: WARFARIN
     Indication: THROMBOSIS
     Route: 065

REACTIONS (6)
  - Vomiting [Not Recovered/Not Resolved]
  - Bone pain [Not Recovered/Not Resolved]
  - Chills [Not Recovered/Not Resolved]
  - Transplant rejection [Not Recovered/Not Resolved]
  - Nausea [Not Recovered/Not Resolved]
  - Movement disorder [Not Recovered/Not Resolved]
